FAERS Safety Report 14339044 (Version 9)
Quarter: 2018Q2

REPORT INFORMATION
  Report Type: Spontaneous
  Country: US (occurrence: US)
  Receive Date: 20171230
  Receipt Date: 20180601
  Transmission Date: 20180711
  Serious: No
  Sender: FDA-Public Use
  Company Number: US-BIOGEN-2017BI00472666

PATIENT
  Age: 59 Year
  Sex: Female

DRUGS (3)
  1. TYSABRI [Interacting]
     Active Substance: NATALIZUMAB
     Dosage: INFUSED OVER 1 HOUR
     Route: 042
     Dates: start: 2015, end: 201801
  2. TYSABRI [Suspect]
     Active Substance: NATALIZUMAB
     Indication: MULTIPLE SCLEROSIS
     Route: 065
     Dates: start: 20151123, end: 20170919
  3. TYSABRI [Interacting]
     Active Substance: NATALIZUMAB
     Dosage: INFUSED OVER 1 HOUR
     Route: 042
     Dates: end: 20171027

REACTIONS (15)
  - Joint swelling [Recovered/Resolved]
  - Nausea [Unknown]
  - Drug interaction [Unknown]
  - Prescribed overdose [Unknown]
  - Abdominal pain upper [Unknown]
  - Hypersensitivity [Recovered/Resolved]
  - Decreased immune responsiveness [Recovered/Resolved]
  - Arthritis [Not Recovered/Not Resolved]
  - Urticaria [Recovered/Resolved]
  - Drug intolerance [Unknown]
  - Mobility decreased [Unknown]
  - Pyrexia [Recovered/Resolved]
  - Vomiting [Unknown]
  - Lyme disease [Recovered/Resolved]
  - Abdominal discomfort [Recovered/Resolved]

NARRATIVE: CASE EVENT DATE: 201705
